FAERS Safety Report 8960501 (Version 1)
Quarter: 2012Q4

REPORT INFORMATION
  Report Type: Spontaneous
  Country: JP (occurrence: None)
  Receive Date: 20121203
  Receipt Date: 20121203
  Transmission Date: 20130627
  Serious: Yes (Other)
  Sender: FDA-Public Use
  Company Number: 2012-19952

PATIENT
  Age: 50 Year
  Sex: Female

DRUGS (3)
  1. OXALIPLATIN [Suspect]
     Indication: COLON CANCER METASTATIC
  2. FLUOROURACIL (FLUOROURACIL) [Concomitant]
  3. CALCIUM FOLINATE (CACLIUM FOLINATE) [Concomitant]

REACTIONS (2)
  - Drug hypersensitivity [None]
  - Hypotension [None]
